FAERS Safety Report 8798079 (Version 1)
Quarter: 2012Q4

REPORT INFORMATION
  Report Type: Spontaneous
  Country: US (occurrence: None)
  Receive Date: 20120917
  Receipt Date: 20120917
  Transmission Date: 20130627
  Serious: Yes (Death)
  Sender: FDA-Public Use
  Company Number: None

PATIENT
  Age: 73 Year
  Sex: Male

DRUGS (8)
  1. LETAIRIS [Suspect]
     Indication: PULMONARY HYPERTENSION
     Route: 048
     Dates: start: 201201, end: 201208
  2. VELETRI [Concomitant]
  3. LETAIRIS [Concomitant]
  4. REVATIO [Concomitant]
  5. AMBIEN [Concomitant]
  6. MORPHINE SULFATE [Concomitant]
  7. PRILOSEC [Concomitant]
  8. SODIUM BICARBONATE [Concomitant]

REACTIONS (3)
  - Renal failure [None]
  - Gastrointestinal haemorrhage [None]
  - Respiratory distress [None]
